FAERS Safety Report 6271928-5 (Version None)
Quarter: 2009Q3

REPORT INFORMATION
  Report Type: 
  Country: None (occurrence: None)
  Receive Date: 20090717
  Receipt Date: 20090707
  Transmission Date: 20100115
  Serious: Yes (Death, Hospitalization, Other)
  Sender: FDA-Public Use
  Company Number: JP-PFIZER INC-2008094417

PATIENT
  Age: 67 Year

DRUGS (16)
  1. SUNITINIB MALATE [Suspect]
     Indication: RENAL CELL CARCINOMA
     Dosage: 50 MG, 1X/DAY
     Route: 048
     Dates: start: 20080912
  2. LOXONIN [Concomitant]
     Dosage: 180 MG, DAILY, THREE TIMES DAILY
     Route: 048
  3. MUCOSTA [Concomitant]
     Route: 048
  4. MEVALOTIN [Concomitant]
     Route: 048
  5. NORVASC [Concomitant]
     Route: 048
  6. SALOBEL [Concomitant]
     Route: 048
  7. PURSENNID [Concomitant]
     Route: 048
  8. CODEINE PHOSPHATE [Concomitant]
     Dosage: 6 MG, DAILY, THREE TIMES DAILY
     Route: 048
     Dates: end: 20090214
  9. MAGNESIUM OXIDE [Concomitant]
     Dosage: UNK
     Route: 048
     Dates: end: 20090216
  10. MEROPEN [Concomitant]
     Dosage: 0.5 MG, DAILY
     Route: 042
     Dates: end: 20090220
  11. METHYLPREDNISOLONE SODIUM SUCCINATE [Concomitant]
     Dosage: 500 MG, DAILY
     Route: 042
     Dates: end: 20090212
  12. OXYCONTIN [Concomitant]
     Dosage: 1 MG, TWICE DAILY
     Route: 048
     Dates: start: 20090126, end: 20090216
  13. AMINO ACIDS/CARBOHYDRATES/MINERALS/VITAMINS, [Concomitant]
     Dosage: OMNCE DAILY
     Route: 042
     Dates: start: 20090118, end: 20090220
  14. ELEMENMIC [Concomitant]
     Dosage: 1 AMPULE/DAY ONCE DAILY
     Route: 042
     Dates: start: 20090118, end: 20090220
  15. GLYCYRRHIZIN/GLYCINE/L-CYSTEINE HYDROCHLORIDE [Concomitant]
     Dosage: 40 ML, TWICE DAILY
  16. PREDNISOLONE [Concomitant]
     Dosage: 20 MG, ONCE DAILY
     Route: 042
     Dates: start: 20090126, end: 20090209

REACTIONS (3)
  - DISEASE PROGRESSION [None]
  - PULMONARY ALVEOLAR HAEMORRHAGE [None]
  - RENAL CELL CARCINOMA [None]
